FAERS Safety Report 5863109-1 (Version None)
Quarter: 2008Q3

REPORT INFORMATION
  Report Type: 
  Country: None (occurrence: None)
  Receive Date: 20080828
  Receipt Date: 20080821
  Transmission Date: 20090109
  Serious: Yes (Other)
  Sender: FDA-Public Use
  Company Number: LB-MERCK-0808USA04306

PATIENT
  Age: 52 Year
  Sex: Female
  Weight: 92 kg

DRUGS (4)
  1. FOSAMAX [Suspect]
     Route: 048
  2. [THERAPY UNSPECIFIED] [Concomitant]
     Route: 065
  3. NEXIUM [Concomitant]
     Route: 065
  4. TAMOXIFEN CITRATE [Concomitant]
     Route: 065

REACTIONS (1)
  - HAEMOPTYSIS [None]
